FAERS Safety Report 16342849 (Version 1)
Quarter: 2019Q2

REPORT INFORMATION
  Report Type: Spontaneous
  Country: US (occurrence: US)
  Receive Date: 20190521
  Receipt Date: 20190521
  Transmission Date: 20190711
  Serious: Yes (Hospitalization)
  Sender: FDA-Public Use
  Company Number: None

PATIENT
  Age: 65 Year
  Sex: Female

DRUGS (6)
  1. SMZ/TMP DS TAB 800-160 [Concomitant]
     Active Substance: SULFAMETHOXAZOLE\TRIMETHOPRIM
  2. TACROLIMUS. [Suspect]
     Active Substance: TACROLIMUS
     Indication: RENAL TRANSPLANT
     Dosage: ?          OTHER FREQUENCY:3C AM, 2C PM;?
     Route: 048
     Dates: start: 20170428
  3. OXYCOD/APAP 5-325MG [Concomitant]
  4. NYSTATIN CRE 100000 [Concomitant]
     Active Substance: NYSTATIN
  5. TOUJEO SOLO INJ 300IU/ML [Concomitant]
  6. MYFORTIC [Suspect]
     Active Substance: MYCOPHENOLATE SODIUM
     Indication: RENAL TRANSPLANT
     Route: 048
     Dates: start: 20170428

REACTIONS (1)
  - Palpitations [None]

NARRATIVE: CASE EVENT DATE: 20190501
